FAERS Safety Report 18220702 (Version 1)
Quarter: 2020Q3

REPORT INFORMATION
  Report Type: Spontaneous
  Country: CA (occurrence: CA)
  Receive Date: 20200902
  Receipt Date: 20200902
  Transmission Date: 20201103
  Serious: Yes (Death)
  Sender: FDA-Public Use
  Company Number: CA-ACCORD-198279

PATIENT

DRUGS (4)
  1. FILGRASTIM/GRANULOCYTE COLONY STIMULATING/LENOGRASTIM [Concomitant]
     Active Substance: GRANULOCYTE COLONY-STIMULATING FACTOR NOS
     Dosage: NOT SPECIFIED
  2. ETOPOSIDE. [Suspect]
     Active Substance: ETOPOSIDE
     Indication: NON-HODGKIN^S LYMPHOMA
     Dosage: NOT SPECIFIED
     Route: 065
  3. PROCYTOX [Suspect]
     Active Substance: CYCLOPHOSPHAMIDE
     Indication: NON-HODGKIN^S LYMPHOMA
     Dosage: NOT SPECIFIED
     Route: 065
  4. CISPLATIN. [Suspect]
     Active Substance: CISPLATIN
     Indication: NON-HODGKIN^S LYMPHOMA
     Dosage: DOSAGE FORM: SOLUTION INTRAVENOUS,INJECTION
     Route: 065

REACTIONS (1)
  - Death [Fatal]
